FAERS Safety Report 20994296 (Version 2)
Quarter: 2022Q3

REPORT INFORMATION
  Report Type: Spontaneous
  Country: US (occurrence: US)
  Receive Date: 20220622
  Receipt Date: 20220805
  Transmission Date: 20221027
  Serious: Yes (Other)
  Sender: FDA-Public Use
  Company Number: US-JNJFOC-20220631968

PATIENT
  Age: 72 Year
  Sex: Male

DRUGS (3)
  1. ZYTIGA [Suspect]
     Active Substance: ABIRATERONE ACETATE
     Indication: Prostate cancer
     Dosage: 250 MG TABLETS 4 ONCE DAILY
     Route: 048
     Dates: start: 20220323, end: 20220515
  2. BUPROPION [Concomitant]
     Active Substance: BUPROPION
     Indication: Anxiety
     Route: 065
  3. PREDNISONE [Concomitant]
     Active Substance: PREDNISONE
     Indication: Prostate cancer
     Route: 065
     Dates: start: 20220329, end: 20220616

REACTIONS (10)
  - Atrial fibrillation [Unknown]
  - Immunosuppression [Unknown]
  - Mental impairment [Unknown]
  - Circulatory collapse [Unknown]
  - Fatigue [Unknown]
  - Decreased appetite [Unknown]
  - Abdominal discomfort [Unknown]
  - Seasonal allergy [Unknown]
  - Dyspnoea [Unknown]
  - Cognitive disorder [Unknown]
